FAERS Safety Report 11050811 (Version 2)
Quarter: 2015Q2

REPORT INFORMATION
  Report Type: Spontaneous
  Country: TR (occurrence: TR)
  Receive Date: 20150421
  Receipt Date: 20150505
  Transmission Date: 20150821
  Serious: Yes (Other)
  Sender: FDA-Public Use
  Company Number: TR-SUN PHARMACEUTICAL INDUSTRIES LTD-2015RR-95662

PATIENT
  Age: 11 Year
  Sex: Female

DRUGS (1)
  1. FLUOXETINE [Suspect]
     Active Substance: FLUOXETINE\FLUOXETINE HYDROCHLORIDE
     Indication: ANXIETY
     Dosage: 20 MG, DAILY
     Route: 065

REACTIONS (4)
  - Vaginal haemorrhage [Recovered/Resolved]
  - Bursitis [Recovered/Resolved]
  - Arthralgia [Recovered/Resolved]
  - Contusion [Recovered/Resolved]
